FAERS Safety Report 6231806-4 (Version None)
Quarter: 2009Q2

REPORT INFORMATION
  Report Type: 
  Country: None (occurrence: None)
  Receive Date: 20090616
  Receipt Date: 20090605
  Transmission Date: 20091009
  Serious: Yes (Other)
  Sender: FDA-Public Use
  Company Number: US-JNJFOC-20090603065

PATIENT
  Age: 22 Year
  Sex: Male
  Weight: 77.11 kg

DRUGS (1)
  1. TYLENOL COLD MULTI-SYMPTOM DAYTIME  COOL BURST [Suspect]
     Indication: NASOPHARYNGITIS

REACTIONS (1)
  - FACIAL PALSY [None]
